FAERS Safety Report 20018946 (Version 9)
Quarter: 2024Q2

REPORT INFORMATION
  Report Type: Other
  Country: US (occurrence: None)
  Receive Date: 20211101
  Receipt Date: 20240502
  Transmission Date: 20240716
  Serious: Yes (Hospitalization)
  Sender: FDA-Public Use
  Company Number: US-ROCHE-2941360

PATIENT
  Age: 56 Year
  Sex: Female
  Weight: 72.64 kg

DRUGS (4)
  1. OCREVUS [Suspect]
     Active Substance: OCRELIZUMAB
     Indication: Relapsing-remitting multiple sclerosis
     Dosage: 600 MG IV EVERY 6 MONTHS
     Route: 042
     Dates: start: 20181206, end: 20191206
  2. OCREVUS [Suspect]
     Active Substance: OCRELIZUMAB
     Dosage: NEXT DOSE ON 18-FEB-2019?DOT : 15-SEP-2023, 22-JUL-2024
     Route: 042
     Dates: start: 20190109
  3. MEROPENEM [Suspect]
     Active Substance: MEROPENEM
     Indication: Product used for unknown indication
     Route: 065
  4. OMNICEF [Suspect]
     Active Substance: CEFDINIR
     Indication: Product used for unknown indication
     Route: 065

REACTIONS (23)
  - Urinary tract infection [Recovered/Resolved]
  - Bacterial infection [Recovered/Resolved]
  - Nephrolithiasis [Recovered/Resolved]
  - Sepsis [Recovered/Resolved]
  - Gait inability [Not Recovered/Not Resolved]
  - Confusional state [Not Recovered/Not Resolved]
  - Drug hypersensitivity [Not Recovered/Not Resolved]
  - Asthenia [Unknown]
  - Insomnia [Unknown]
  - Tinnitus [Unknown]
  - Blood creatinine decreased [Unknown]
  - Blood glucose increased [Unknown]
  - Blood chloride increased [Unknown]
  - Anion gap decreased [Unknown]
  - Red blood cell count decreased [Unknown]
  - C-reactive protein increased [Unknown]
  - Haemoglobin decreased [Unknown]
  - Haematocrit decreased [Unknown]
  - Red cell distribution width increased [Unknown]
  - Blood urea nitrogen/creatinine ratio increased [Unknown]
  - Demyelination [Unknown]
  - Headache [Unknown]
  - Gait disturbance [Unknown]

NARRATIVE: CASE EVENT DATE: 20210831
